FAERS Safety Report 14847920 (Version 2)
Quarter: 2018Q4

REPORT INFORMATION
  Report Type: Spontaneous
  Country: US (occurrence: US)
  Receive Date: 20180504
  Receipt Date: 20181016
  Transmission Date: 20190204
  Serious: No
  Sender: FDA-Public Use
  Company Number: US-ALKERMES INC.-ALK-2018-002360

PATIENT
  Age: 20 Year
  Sex: Male
  Weight: 74.83 kg

DRUGS (3)
  1. ARISTADA [Suspect]
     Active Substance: ARIPIPRAZOLE LAUROXIL
     Indication: SCHIZOAFFECTIVE DISORDER
     Dosage: 882 MG, QMO
     Route: 030
     Dates: start: 20180420, end: 201808
  2. ARISTADA [Suspect]
     Active Substance: ARIPIPRAZOLE LAUROXIL
     Indication: DISORGANISED SPEECH
  3. ARISTADA [Suspect]
     Active Substance: ARIPIPRAZOLE LAUROXIL
     Indication: PSYCHOTIC DISORDER

REACTIONS (9)
  - Depression [Unknown]
  - Off label use [Unknown]
  - Malaise [Unknown]
  - Feeling abnormal [Unknown]
  - Anxiety [Not Recovered/Not Resolved]
  - Disorganised speech [Unknown]
  - Personality change [Unknown]
  - Delusion [Unknown]
  - Depersonalisation/derealisation disorder [Unknown]

NARRATIVE: CASE EVENT DATE: 20180420
